FAERS Safety Report 17788384 (Version 1)
Quarter: 2020Q2

REPORT INFORMATION
  Report Type: Report from Study
  Country: None (occurrence: US)
  Receive Date: 20200515
  Receipt Date: 20200515
  Transmission Date: 20200714
  Serious: Yes (Hospitalization, Other)
  Sender: FDA-Public Use
  Company Number: US-ABBVIE-18K-163-2510163-00

PATIENT
  Sex: Female

DRUGS (1)
  1. HUMIRA [Suspect]
     Active Substance: ADALIMUMAB
     Indication: RHEUMATOID ARTHRITIS
     Route: 058

REACTIONS (9)
  - Respiratory disorder [Unknown]
  - Lung disorder [Unknown]
  - Gastric disorder [Unknown]
  - Alopecia [Not Recovered/Not Resolved]
  - Hypertension [Unknown]
  - Chest pain [Unknown]
  - Neoplasm malignant [Unknown]
  - Rash pruritic [Not Recovered/Not Resolved]
  - Malignant melanoma [Not Recovered/Not Resolved]
